FAERS Safety Report 4689684-0 (Version None)
Quarter: 2005Q2

REPORT INFORMATION
  Report Type: 
  Country: None (occurrence: None)
  Receive Date: 20050614
  Receipt Date: 20050601
  Transmission Date: 20051028
  Serious: Yes (Death, Life-Threatening, Other)
  Sender: FDA-Public Use
  Company Number: GB-JNJFOC-20050302408

PATIENT
  Sex: Female
  Weight: 60 kg

DRUGS (7)
  1. REMICADE [Suspect]
     Indication: RHEUMATOID ARTHRITIS
     Route: 042
  2. METHOTREXATE [Concomitant]
     Indication: RHEUMATOID ARTHRITIS
     Route: 049
  3. FOLIC ACID [Concomitant]
     Indication: RHEUMATOID ARTHRITIS
     Route: 049
  4. INDOCID [Concomitant]
     Indication: RHEUMATOID ARTHRITIS
     Route: 049
  5. CO-PROXAMOL [Concomitant]
     Route: 049
  6. CO-PROXAMOL [Concomitant]
     Indication: RHEUMATOID ARTHRITIS
     Dosage: FREQUENCY -TAKEN AS NEEDED
     Route: 049
  7. CIMETIDINE [Concomitant]
     Dosage: TAKEN AS NEEDED
     Route: 049

REACTIONS (4)
  - ADENOCARCINOMA [None]
  - DEATH [None]
  - METASTATIC NEOPLASM [None]
  - PLEURAL EFFUSION [None]
